FAERS Safety Report 14188443 (Version 1)
Quarter: 2017Q4

REPORT INFORMATION
  Report Type: Spontaneous
  Country: US (occurrence: US)
  Receive Date: 20171114
  Receipt Date: 20171114
  Transmission Date: 20180321
  Serious: No
  Sender: FDA-Public Use
  Company Number: US-BAYER-2017-219133

PATIENT
  Sex: Female

DRUGS (1)
  1. MIRENA [Suspect]
     Active Substance: LEVONORGESTREL
     Dosage: 20 MCG/24HR, CONT
     Route: 015
     Dates: start: 201602

REACTIONS (4)
  - Vaginal haemorrhage [None]
  - Menorrhagia [None]
  - Abdominal pain lower [None]
  - Oligomenorrhoea [None]

NARRATIVE: CASE EVENT DATE: 201710
